FAERS Safety Report 24835554 (Version 3)
Quarter: 2025Q1

REPORT INFORMATION
  Report Type: Spontaneous
  Country: GB (occurrence: GB)
  Receive Date: 20250113
  Receipt Date: 20250225
  Transmission Date: 20250408
  Serious: Yes (Hospitalization)
  Sender: MYLAN
  Company Number: GB-MYLANLABS-2025M1002508

PATIENT
  Age: 76 Year
  Sex: Male

DRUGS (2)
  1. CLOZARIL [Suspect]
     Active Substance: CLOZAPINE
     Indication: Schizophrenia
     Dosage: BID (150 MG OD, 200 MG NIGHT)
     Dates: start: 20211210, end: 20241224
  2. CLOZARIL [Suspect]
     Active Substance: CLOZAPINE

REACTIONS (6)
  - Schizophrenia [Recovered/Resolved]
  - Memory impairment [Unknown]
  - Paranoia [Unknown]
  - Leukocytosis [Unknown]
  - Neutrophilia [Unknown]
  - Therapy cessation [Unknown]

NARRATIVE: CASE EVENT DATE: 20241224
